FAERS Safety Report 17301345 (Version 1)
Quarter: 2020Q1

REPORT INFORMATION
  Report Type: Spontaneous
  Country: FR (occurrence: FR)
  Receive Date: 20200122
  Receipt Date: 20200122
  Transmission Date: 20200409
  Serious: Yes (Hospitalization)
  Sender: FDA-Public Use
  Company Number: FR-PFIZER INC-2020024302

PATIENT
  Age: 73 Year
  Sex: Male
  Weight: 78 kg

DRUGS (7)
  1. TAHOR [Suspect]
     Active Substance: ATORVASTATIN CALCIUM
     Indication: HYPERCHOLESTEROLAEMIA
     Dosage: 20 MG, 1X/DAY
     Route: 048
  2. APROVEL [Concomitant]
     Active Substance: IRBESARTAN
     Dosage: UNK
  3. ARANESP [Concomitant]
     Active Substance: DARBEPOETIN ALFA
     Dosage: UNK
  4. KARDEGIC [Concomitant]
     Active Substance: ASPIRIN DL-LYSINE
     Dosage: UNK
  5. VIDAZA [Suspect]
     Active Substance: AZACITIDINE
     Indication: MYELODYSPLASTIC SYNDROME
     Dosage: 150 MG, CYCLIC (ON D1 - D1=D28)
     Route: 058
     Dates: start: 20190226, end: 20191010
  6. DESFERAL [Concomitant]
     Active Substance: DEFEROXAMINE MESYLATE
     Indication: HAEMOCHROMATOSIS
     Dosage: 20 G, WEEKLY (4G DAILY, 5 DAYS IN A ROW)
     Dates: start: 20190923
  7. LERCAN [Concomitant]
     Active Substance: LERCANIDIPINE
     Dosage: UNK

REACTIONS (1)
  - Organising pneumonia [Not Recovered/Not Resolved]

NARRATIVE: CASE EVENT DATE: 201908
